FAERS Safety Report 14287410 (Version 1)
Quarter: 2017Q4

REPORT INFORMATION
  Report Type: Spontaneous
  Country: NZ (occurrence: NZ)
  Receive Date: 20171214
  Receipt Date: 20171214
  Transmission Date: 20180321
  Serious: Yes (Hospitalization, Other)
  Sender: FDA-Public Use
  Company Number: NZ-IPCA LABORATORIES LIMITED-IPC201207-000330

PATIENT
  Age: 51 Year
  Sex: Male
  Weight: 75 kg

DRUGS (6)
  1. CITALOPRAM [Suspect]
     Active Substance: CITALOPRAM HYDROBROMIDE
  2. ASPIRIN. [Suspect]
     Active Substance: ASPIRIN
  3. AMITRIPTYLINE [Suspect]
     Active Substance: AMITRIPTYLINE
     Dosage: UNK,UNK,43 MG/ KG (} 65 X 50-MG TABLETS)
  4. METOPROLOL TARTRATE. [Suspect]
     Active Substance: METOPROLOL TARTRATE
     Indication: PRODUCT USED FOR UNKNOWN INDICATION
  5. QUINAPRIL. [Suspect]
     Active Substance: QUINAPRIL
  6. QUETIAPINE FUMARATE. [Suspect]
     Active Substance: QUETIAPINE FUMARATE

REACTIONS (4)
  - Intentional overdose [Unknown]
  - Cardiotoxicity [Recovered/Resolved]
  - Seizure [Recovered/Resolved]
  - Pneumonia aspiration [Recovered/Resolved]
